FAERS Safety Report 6310773-9 (Version None)
Quarter: 2009Q3

REPORT INFORMATION
  Report Type: 
  Country: None (occurrence: None)
  Receive Date: 20090812
  Receipt Date: 20090804
  Transmission Date: 20100115
  Serious: Yes (Life-Threatening, Hospitalization, Other)
  Sender: FDA-Public Use
  Company Number: CHPA2009US16518

PATIENT
  Age: 83 Year
  Sex: Female

DRUGS (1)
  1. VOLTAREN [Suspect]
     Indication: OSTEOARTHRITIS
     Dosage: 2G, QID, TOPICAL
     Route: 061

REACTIONS (3)
  - CELLULITIS [None]
  - SWELLING [None]
  - WHITE BLOOD CELL COUNT INCREASED [None]
